FAERS Safety Report 22122585 (Version 2)
Quarter: 2023Q1

REPORT INFORMATION
  Report Type: Report from Study
  Country: US (occurrence: US)
  Receive Date: 20230321
  Receipt Date: 20230330
  Transmission Date: 20230418
  Serious: Yes (Hospitalization, Other)
  Sender: FDA-Public Use
  Company Number: US-GENMAB-2023-00385

PATIENT
  Age: 51 Year
  Sex: Female
  Weight: 108 kg

DRUGS (52)
  1. TISOTUMAB VEDOTIN [Suspect]
     Active Substance: TISOTUMAB VEDOTIN
     Indication: Cervix carcinoma
     Dosage: 2.0 MILLIGRAM/KILOGRAM, 1Q3W
     Route: 042
     Dates: start: 20221207, end: 20230302
  2. PEMBROLIZUMAB [Suspect]
     Active Substance: PEMBROLIZUMAB
     Indication: Cervix carcinoma
     Dosage: 200 MILLIGRAM, 1Q3W
     Route: 042
     Dates: start: 20221207
  3. CARBOPLATIN [Suspect]
     Active Substance: CARBOPLATIN
     Indication: Cervix carcinoma
     Dosage: 5 AUC, 1Q3W
     Route: 042
     Dates: start: 20221207, end: 20230302
  4. BEVACIZUMAB [Suspect]
     Active Substance: BEVACIZUMAB
     Indication: Cervix carcinoma
     Dosage: 15 MILLIGRAM/KILOGRAM, 1Q3W
     Route: 042
     Dates: start: 20221207, end: 20230130
  5. ADDERALL [Concomitant]
     Active Substance: AMPHETAMINE ASPARTATE\AMPHETAMINE SULFATE\DEXTROAMPHETAMINE SACCHARATE\DEXTROAMPHETAMINE SULFATE
     Indication: Attention deficit hyperactivity disorder
     Dosage: 25 MILLIGRAM, QD
     Route: 048
     Dates: start: 200505
  6. AMLODIPINE [Concomitant]
     Active Substance: AMLODIPINE BESYLATE
     Indication: Hypertension
     Dosage: 5 MILLIGRAM, QD
     Route: 048
     Dates: start: 200505
  7. CARVEDILOL [Concomitant]
     Active Substance: CARVEDILOL
     Indication: Hypertension
     Dosage: 12.5 MILLIGRAM, QD
     Route: 048
     Dates: start: 200505
  8. MOMETASONE FUROATE [Concomitant]
     Active Substance: MOMETASONE FUROATE
     Indication: Seasonal allergy
     Dosage: 27.5 MICROGRAM, QD
     Route: 045
     Dates: start: 200504
  9. HYDROXYZINE [Concomitant]
     Active Substance: HYDROXYZINE HYDROCHLORIDE
     Indication: Seasonal allergy
     Dosage: 25 MILLIGRAM, PRN
     Route: 048
     Dates: start: 200504
  10. MELOXICAM [Concomitant]
     Active Substance: MELOXICAM
     Indication: Arthritis
     Dosage: 15 MILLIGRAM, QD
     Route: 048
     Dates: start: 202003
  11. PAROXETINE [Concomitant]
     Active Substance: PAROXETINE
     Indication: Depression
     Dosage: 30 MILLIGRAM, QD
     Route: 048
     Dates: start: 200609
  12. ALBUTEROL [Concomitant]
     Active Substance: ALBUTEROL
     Indication: Seasonal allergy
     Dosage: 90 MICROGRAM, PRN
     Dates: start: 200504
  13. TRAMADOL [Concomitant]
     Active Substance: TRAMADOL
     Indication: Pain
     Dosage: 50 MILLIGRAM, PRN
     Route: 048
     Dates: start: 202003
  14. AFRIN [OXYMETAZOLINE] [Concomitant]
     Indication: Epistaxis
     Dosage: 0.05 PERCENT, BID
     Route: 045
     Dates: start: 20221214
  15. SODIUM CHLORIDE [Concomitant]
     Active Substance: SODIUM CHLORIDE
     Indication: Epistaxis
     Dosage: 0.65 PERCENT, PRN
     Route: 045
     Dates: start: 20221214
  16. LOPERAMIDE [Concomitant]
     Active Substance: LOPERAMIDE
     Indication: Diarrhoea
     Dosage: 2 MILLIGRAM, 2 CAP S/P BM, THEN 1 CAP S/P EACH SUBSEQUENT LOOSE BM. NOT TO EXCEED 16MG (8 CAP) QD
     Route: 048
     Dates: start: 20221209
  17. ATROPINE\DIPHENOXYLATE [Concomitant]
     Active Substance: ATROPINE\DIPHENOXYLATE
     Indication: Diarrhoea
     Dosage: 1 DOSE OF 2.5 MG/0.025 MG, PRN
     Route: 048
     Dates: start: 20221214
  18. ONDANSETRON [Concomitant]
     Active Substance: ONDANSETRON
     Indication: Nausea
     Dosage: 8 MILLIGRAM, PRN
     Route: 048
     Dates: start: 20221017
  19. PROCHLORPERAZINE [Concomitant]
     Active Substance: PROCHLORPERAZINE
     Indication: Nausea
     Dosage: 10 MILLIGRAM, PRN
     Route: 048
     Dates: start: 20221017
  20. APIXABAN [Concomitant]
     Active Substance: APIXABAN
     Indication: Pulmonary embolism
     Dosage: 10 MILLIGRAM, BID
     Route: 048
     Dates: start: 20230227, end: 20230303
  21. SODIUM CHLORIDE [Concomitant]
     Active Substance: SODIUM CHLORIDE
     Indication: Prophylaxis
     Dosage: 1 DOSAGE FORM (APPLICATION), PRN
     Route: 042
     Dates: start: 20221209
  22. MAGNESIUM [Concomitant]
     Active Substance: MAGNESIUM
     Indication: Hypomagnesaemia
     Dosage: 2 GRAM, PRN
     Route: 042
     Dates: start: 20230123
  23. CEFDINIR [Concomitant]
     Active Substance: CEFDINIR
     Indication: Adverse event
     Dosage: 300 MILLIGRAM, BID
     Route: 048
     Dates: start: 20230308, end: 20230312
  24. MELATONIN [Concomitant]
     Active Substance: MELATONIN
     Indication: Adverse event
     Dosage: 3 MILLIGRAM, QD
     Route: 048
     Dates: start: 20230310
  25. MAGNESIUM OXIDE [Concomitant]
     Active Substance: MAGNESIUM OXIDE
     Indication: Hypomagnesaemia
     Dosage: 800 MILLIGRAM, Q4H ( ONCE EVERY 4 HOURS, TWO DOSES TOTAL)
     Route: 048
     Dates: start: 20230312, end: 20230312
  26. MAGNESIUM OXIDE [Concomitant]
     Active Substance: MAGNESIUM OXIDE
     Dosage: 800 MILLIGRAM, SINGLE
     Route: 048
     Dates: start: 20230313, end: 20230313
  27. MAGNESIUM OXIDE [Concomitant]
     Active Substance: MAGNESIUM OXIDE
     Dosage: 800 MILLIGRAM, Q4H ( ONCE EVERY 4 HOURS, TWO DOSES TOTAL)
     Route: 048
     Dates: start: 20230315, end: 20230315
  28. MAGNESIUM OXIDE [Concomitant]
     Active Substance: MAGNESIUM OXIDE
     Dosage: 800 MILLIGRAM, Q4H ( ONCE EVERY 4 HOURS, TWO DOSES TOTAL)
     Route: 048
     Dates: start: 20230316, end: 20230316
  29. MAGNESIUM OXIDE [Concomitant]
     Active Substance: MAGNESIUM OXIDE
     Dosage: 800 MILLIGRAM, Q4H ( ONCE EVERY 4 HOURS, TWO DOSES TOTAL)
     Route: 048
     Dates: start: 20230319, end: 20230319
  30. MAGNESIUM SULFATE [Concomitant]
     Active Substance: MAGNESIUM SULFATE
     Indication: Hypomagnesaemia
     Dosage: 2 GRAM, ONCE EVERY 2 HOURS, TWO DOSES TOTAL
     Route: 042
     Dates: start: 20230309, end: 20230309
  31. MAGNESIUM SULFATE [Concomitant]
     Active Substance: MAGNESIUM SULFATE
     Dosage: 2 GRAM, QD
     Route: 042
     Dates: start: 20230311, end: 20230311
  32. MAGNESIUM SULFATE [Concomitant]
     Active Substance: MAGNESIUM SULFATE
     Dosage: 2 GRAM, ONCE EVERY 2 HOURS, TWO DOSES TOTAL
     Route: 042
     Dates: start: 20230314, end: 20230314
  33. MAGNESIUM SULFATE [Concomitant]
     Active Substance: MAGNESIUM SULFATE
     Dosage: 2 GRAM, QD
     Route: 042
     Dates: start: 20230316, end: 20230318
  34. MAGNESIUM SULFATE [Concomitant]
     Active Substance: MAGNESIUM SULFATE
     Dosage: 2 GRAM, QD
     Route: 042
     Dates: start: 20230320, end: 20230320
  35. POTASSIUM PHOSPHATES [Concomitant]
     Active Substance: POTASSIUM PHOSPHATE, DIBASIC\POTASSIUM PHOSPHATE, MONOBASIC
     Indication: Adverse event
     Dosage: 1 DOSAGE FORM (TABLET), TID
     Route: 048
     Dates: start: 20230309, end: 20230309
  36. POTASSIUM PHOSPHATES [Concomitant]
     Active Substance: POTASSIUM PHOSPHATE, DIBASIC\POTASSIUM PHOSPHATE, MONOBASIC
     Dosage: 15 MMOL/L, QD
     Route: 042
     Dates: start: 20230311
  37. POTASSIUM PHOSPHATES [Concomitant]
     Active Substance: POTASSIUM PHOSPHATE, DIBASIC\POTASSIUM PHOSPHATE, MONOBASIC
     Dosage: 1 DOSAGE FORM (PACKET), QD
     Route: 048
     Dates: start: 20230316, end: 20230316
  38. POTASSIUM PHOSPHATES [Concomitant]
     Active Substance: POTASSIUM PHOSPHATE, DIBASIC\POTASSIUM PHOSPHATE, MONOBASIC
     Dosage: 1 DOSAGE FORM (PACKET), TID
     Route: 048
     Dates: start: 20230317, end: 20230317
  39. POTASSIUM PHOSPHATES [Concomitant]
     Active Substance: POTASSIUM PHOSPHATE, DIBASIC\POTASSIUM PHOSPHATE, MONOBASIC
     Dosage: 2 DOSAGE FORM (TABLET), QD
     Route: 048
     Dates: start: 20230318, end: 20230318
  40. POTASSIUM CHLORIDE [Concomitant]
     Active Substance: POTASSIUM CHLORIDE
     Indication: Adverse event
     Dosage: 20 MILLIEQUIVALENT, ONCE EVERY 2 HOURS, FOUR DOSES TOTAL
     Route: 048
     Dates: start: 20230310, end: 20230310
  41. POTASSIUM CHLORIDE [Concomitant]
     Active Substance: POTASSIUM CHLORIDE
     Dosage: 20 MILLIEQUIVALENT, ONCE EVERY 2 HOURS, TWO TOTAL DOSES
     Route: 048
     Dates: start: 20230312, end: 20230312
  42. POTASSIUM CHLORIDE [Concomitant]
     Active Substance: POTASSIUM CHLORIDE
     Dosage: 20 MILLIEQUIVALENT, QD
     Route: 048
     Dates: start: 20230315, end: 20230315
  43. POTASSIUM CHLORIDE [Concomitant]
     Active Substance: POTASSIUM CHLORIDE
     Dosage: 20 MILLIEQUIVALENT, ONCE EVERY 2 HOURS, TWO TOTAL DOSES
     Route: 048
     Dates: start: 20230316, end: 20230316
  44. POTASSIUM CHLORIDE [Concomitant]
     Active Substance: POTASSIUM CHLORIDE
     Dosage: 20 MILLIEQUIVALENT, ONCE EVERY 2 HOURS, THREE TOTAL DOSES
     Route: 048
     Dates: start: 20230319, end: 20230319
  45. PREDNISONE [Concomitant]
     Active Substance: PREDNISONE
     Indication: Rash maculo-papular
     Dosage: 40 MILLIGRAM, BID
     Route: 048
     Dates: start: 20230208
  46. PREDNISONE [Concomitant]
     Active Substance: PREDNISONE
     Dosage: 70 MILLIGRAM, QD
     Route: 048
     Dates: start: 20230222, end: 20230224
  47. PREDNISONE [Concomitant]
     Active Substance: PREDNISONE
     Dosage: 60 MILLIGRAM, QD
     Route: 048
     Dates: start: 20230225, end: 20230227
  48. PREDNISONE [Concomitant]
     Active Substance: PREDNISONE
     Dosage: 50 MILLIGRAM, QD
     Route: 048
     Dates: start: 20230228, end: 20230302
  49. PREDNISONE [Concomitant]
     Active Substance: PREDNISONE
     Dosage: 50 MILLIGRAM, QD
     Route: 048
     Dates: start: 20230303, end: 20230305
  50. PREDNISONE [Concomitant]
     Active Substance: PREDNISONE
     Dosage: 30 MILLIGRAM, QD
     Route: 048
     Dates: start: 20230306, end: 20230308
  51. PREDNISONE [Concomitant]
     Active Substance: PREDNISONE
     Dosage: 20 MILLIGRAM, QD
     Route: 048
     Dates: start: 20230309, end: 20230311
  52. PREDNISONE [Concomitant]
     Active Substance: PREDNISONE
     Dosage: 10 MILLIGRAM, QD
     Route: 048
     Dates: start: 20230312, end: 20230314

REACTIONS (2)
  - Pancytopenia [Not Recovered/Not Resolved]
  - Dehydration [Recovered/Resolved]

NARRATIVE: CASE EVENT DATE: 20230303
